FAERS Safety Report 25212157 (Version 1)
Quarter: 2025Q2

REPORT INFORMATION
  Report Type: Report from Study
  Country: US (occurrence: US)
  Receive Date: 20250418
  Receipt Date: 20250418
  Transmission Date: 20250716
  Serious: Yes (Hospitalization)
  Sender: ABBVIE
  Company Number: US-ABBVIE-6231602

PATIENT
  Age: 82 Year
  Sex: Male

DRUGS (1)
  1. RINVOQ [Suspect]
     Active Substance: UPADACITINIB
     Indication: Dermatitis atopic
     Route: 048
     Dates: start: 202503

REACTIONS (2)
  - Oedema peripheral [Unknown]
  - Cardiac disorder [Recovering/Resolving]

NARRATIVE: CASE EVENT DATE: 20250101
